FAERS Safety Report 10036113 (Version 1)
Quarter: 2014Q1

REPORT INFORMATION
  Report Type: Spontaneous
  Country: US (occurrence: US)
  Receive Date: 20140325
  Receipt Date: 20140325
  Transmission Date: 20141002
  Serious: Yes (Hospitalization)
  Sender: FDA-Public Use
  Company Number: US-B.I. PHARMACEUTICALS,INC./RIDGEFIELD-2014-BI-12004BP

PATIENT
  Age: 68 Year
  Sex: Male
  Weight: 61 kg

DRUGS (12)
  1. SPIRIVA [Suspect]
     Indication: CHRONIC OBSTRUCTIVE PULMONARY DISEASE
     Dosage: 18 MCG
     Route: 055
     Dates: start: 2011
  2. DALIRESP [Concomitant]
     Indication: CHRONIC OBSTRUCTIVE PULMONARY DISEASE
     Dosage: 500 MG
     Route: 048
  3. CODEINE [Concomitant]
     Indication: COUGH
     Route: 048
  4. NITROGLYCERIN [Concomitant]
     Indication: ARTERIAL OCCLUSIVE DISEASE
  5. PREDNISONE [Concomitant]
     Route: 048
  6. AZITHROMYCIN [Concomitant]
     Route: 048
  7. TUSSIN [Concomitant]
     Indication: COUGH
     Route: 048
  8. ADVAIR [Concomitant]
     Indication: ASTHMA
     Dosage: FORMULATION: INHALATION SPRAY
     Route: 055
  9. LIPITOR [Concomitant]
     Indication: BLOOD CHOLESTEROL INCREASED
     Route: 048
  10. ALBUTEROL [Concomitant]
     Indication: ASTHMA
     Route: 055
  11. ASPIRIN [Concomitant]
     Dosage: 81 MG
     Route: 048
  12. OMEPRAZOLE [Concomitant]
     Route: 048

REACTIONS (1)
  - Cough [Unknown]
